FAERS Safety Report 11004147 (Version 2)
Quarter: 2015Q3

REPORT INFORMATION
  Report Type: Spontaneous
  Country: US (occurrence: US)
  Receive Date: 20150409
  Receipt Date: 20150807
  Transmission Date: 20151125
  Serious: No
  Sender: FDA-Public Use
  Company Number: US-ASTRAZENECA-2015SE16993

PATIENT
  Sex: Female

DRUGS (4)
  1. LANTUS [Concomitant]
     Active Substance: INSULIN GLARGINE
  2. BYDUREON [Suspect]
     Active Substance: EXENATIDE
     Indication: TYPE 2 DIABETES MELLITUS
     Route: 058
     Dates: start: 20150210
  3. METFORMIN [Concomitant]
     Active Substance: METFORMIN HYDROCHLORIDE
  4. REGULAR INSULIN [Concomitant]
     Active Substance: INSULIN NOS

REACTIONS (11)
  - Diarrhoea [Unknown]
  - Injection site scar [Unknown]
  - Stress [Unknown]
  - Thinking abnormal [Unknown]
  - Injection site haemorrhage [Unknown]
  - Headache [Unknown]
  - Injection site scab [Unknown]
  - Nervousness [Unknown]
  - Injection site mass [Unknown]
  - Eructation [Unknown]
  - Nausea [Unknown]
